FAERS Safety Report 8952987 (Version 1)
Quarter: 2012Q4

REPORT INFORMATION
  Report Type: 
  Country: DE (occurrence: CA)
  Receive Date: 20121205
  Receipt Date: 20121205
  Transmission Date: 20130627
  Serious: Yes (Hospitalization)
  Sender: FDA-Public Use
  Company Number: CA-FRI-1000040767

PATIENT
  Age: 63 Year
  Sex: Female

DRUGS (3)
  1. ROFLUMILAST [Suspect]
     Dosage: 250 mcg QOD
     Dates: start: 20120610, end: 2012
  2. ROFLUMILAST [Suspect]
     Dosage: 500 mcg QOD
     Route: 048
     Dates: start: 2012, end: 2012
  3. ROFLUMILAST [Suspect]
     Dosage: 500 mcg
     Route: 048
     Dates: start: 2012

REACTIONS (2)
  - Asthma [Unknown]
  - Wrong technique in drug usage process [Recovered/Resolved]
